FAERS Safety Report 14664930 (Version 1)
Quarter: 2018Q1

REPORT INFORMATION
  Report Type: Spontaneous
  Country: US (occurrence: US)
  Receive Date: 20180319
  Receipt Date: 20180319
  Transmission Date: 20180509
  Serious: Yes (Other)
  Sender: FDA-Public Use
  Company Number: None

PATIENT
  Age: 60 Year
  Sex: Male

DRUGS (6)
  1. DIVALPROEX ER [Suspect]
     Active Substance: DIVALPROEX SODIUM
     Indication: AFFECTIVE DISORDER
     Route: 048
     Dates: start: 20180104
  2. FERROUS SULFATE 325 MG DAILY [Concomitant]
     Dates: start: 20180122
  3. QUETIAPINE 800 MG AT BEDTIME [Concomitant]
     Dates: start: 20180104
  4. HALOPERIDOL DECANOATE. [Suspect]
     Active Substance: HALOPERIDOL DECANOATE
     Indication: PSYCHOTIC DISORDER
     Dosage: ?          OTHER FREQUENCY:EVERY 2 WEEKS;?
     Route: 030
     Dates: start: 20180104, end: 20180129
  5. DIPHENHYDRAMINE 50 MG AT BEDTIME [Concomitant]
     Dates: start: 20180124
  6. NACL 2 GM THREE TIMES DAILY [Concomitant]
     Dates: start: 20180202, end: 20180212

REACTIONS (5)
  - Insomnia [None]
  - Hyponatraemia [None]
  - Hypochloraemia [None]
  - Iron deficiency anaemia [None]
  - Therapy change [None]

NARRATIVE: CASE EVENT DATE: 20180202
